FAERS Safety Report 19788440 (Version 1)
Quarter: 2021Q3

REPORT INFORMATION
  Report Type: Spontaneous
  Country: CA (occurrence: CA)
  Receive Date: 20210905
  Receipt Date: 20210905
  Transmission Date: 20211014
  Serious: Yes (Hospitalization, Other)
  Sender: FDA-Public Use
  Company Number: CA-TEVA-2021-CA-1948272

PATIENT
  Age: 64 Year
  Sex: Male
  Weight: 75 kg

DRUGS (5)
  1. METFORMIN [Suspect]
     Active Substance: METFORMIN HYDROCHLORIDE
     Indication: PULMONARY ARTERIAL HYPERTENSION
     Route: 065
  2. NADOLOL. [Suspect]
     Active Substance: NADOLOL
     Indication: PULMONARY ARTERIAL HYPERTENSION
     Route: 065
  3. VOLIBRIS [Suspect]
     Active Substance: AMBRISENTAN
     Indication: PULMONARY ARTERIAL HYPERTENSION
     Dosage: 10 MILLIGRAM DAILY;
     Route: 048
  4. VOLIBRIS [Suspect]
     Active Substance: AMBRISENTAN
     Indication: PRODUCT USED FOR UNKNOWN INDICATION
     Dosage: 10 MILLIGRAM DAILY;
     Route: 048
  5. ADCIRCA [Suspect]
     Active Substance: TADALAFIL
     Indication: PULMONARY ARTERIAL HYPERTENSION
     Dosage: 40 MILLIGRAM DAILY;
     Route: 048

REACTIONS (7)
  - Fluid overload [Unknown]
  - Hepatic encephalopathy [Unknown]
  - Weight decreased [Unknown]
  - Appetite disorder [Unknown]
  - Decreased appetite [Unknown]
  - Memory impairment [Unknown]
  - Confusional state [Unknown]
